FAERS Safety Report 25742002 (Version 1)
Quarter: 2025Q3

REPORT INFORMATION
  Report Type: Spontaneous
  Country: US (occurrence: US)
  Receive Date: 20250829
  Receipt Date: 20250829
  Transmission Date: 20251020
  Serious: No
  Sender: MERCK SHARP & DOHME LLC
  Company Number: US-009507513-2323610

PATIENT
  Age: 59 Year
  Sex: Male
  Weight: 50.893 kg

DRUGS (15)
  1. SOTATERCEPT [Suspect]
     Active Substance: SOTATERCEPT
     Indication: Product used for unknown indication
  2. SOTATERCEPT [Suspect]
     Active Substance: SOTATERCEPT
     Dates: start: 202508
  3. SOTATERCEPT [Suspect]
     Active Substance: SOTATERCEPT
  4. SOTATERCEPT [Suspect]
     Active Substance: SOTATERCEPT
  5. REMODULIN [Suspect]
     Active Substance: TREPROSTINIL
     Indication: Pulmonary arterial hypertension
     Route: 058
     Dates: start: 20230718
  6. JARDIANCE [Concomitant]
     Active Substance: EMPAGLIFLOZIN
  7. ALBUTEROL SULFATE [Concomitant]
     Active Substance: ALBUTEROL SULFATE
  8. SILDENAFIL CITRATE [Concomitant]
     Active Substance: SILDENAFIL CITRATE
  9. ELIQUIS [Concomitant]
     Active Substance: APIXABAN
  10. NITROGLYCERIN [Concomitant]
     Active Substance: NITROGLYCERIN
  11. OXYGEN [Concomitant]
     Active Substance: OXYGEN
  12. LETAIRIS [Concomitant]
     Active Substance: AMBRISENTAN
  13. TRAZODONE HCL [Concomitant]
     Active Substance: TRAZODONE HYDROCHLORIDE
  14. FUROSEMIDE [Concomitant]
     Active Substance: FUROSEMIDE
  15. ASPIRIN [Concomitant]
     Active Substance: ASPIRIN

REACTIONS (2)
  - Epistaxis [Recovered/Resolved]
  - Epistaxis [Recovered/Resolved]

NARRATIVE: CASE EVENT DATE: 20250801
